FAERS Safety Report 7186027-8 (Version None)
Quarter: 2010Q4

REPORT INFORMATION
  Report Type: 
  Country: None (occurrence: None)
  Receive Date: 20101222
  Receipt Date: 20100614
  Transmission Date: 20110411
  Serious: No
  Sender: FDA-Public Use
  Company Number: US-AMGEN-TCS418430

PATIENT

DRUGS (11)
  1. ENBREL [Suspect]
     Indication: RHEUMATOID ARTHRITIS
     Dosage: 50 MG, QWK
     Route: 058
     Dates: start: 20060710
  2. ALENDRONATE SODIUM [Concomitant]
     Dosage: 70 MG, QWK
     Route: 048
  3. ASCORBIC ACID [Concomitant]
     Dosage: 500 MG, QD
  4. ATENOLOL [Concomitant]
     Dosage: 25 MG, QD
     Route: 048
  5. CALCIUM CARBONATE/VITAMIN D [Concomitant]
     Dosage: UNK UNK, QD
  6. MULTI-VITAMINS [Concomitant]
     Dosage: UNK UNK, QD
  7. HYDROCHLOROTHIAZIDE [Concomitant]
     Dosage: 50 MG, QD
     Route: 048
  8. LEFLUNOMIDE [Concomitant]
     Dosage: 20 MG, QD
     Route: 048
  9. LETROZOLE [Concomitant]
     Dosage: 2.5 MG, UNK
  10. SIMVASTATIN [Concomitant]
     Dosage: 40 MG, QD
     Route: 048
  11. TOCOPHEROL CONCENTRATE CAP [Concomitant]
     Dosage: 400 IU, PRN

REACTIONS (8)
  - ABDOMINAL PAIN UPPER [None]
  - BACK PAIN [None]
  - BLOOD CHOLESTEROL INCREASED [None]
  - DIARRHOEA [None]
  - FATIGUE [None]
  - HEADACHE [None]
  - LYMPHADENOPATHY [None]
  - NAUSEA [None]
